FAERS Safety Report 7429416-6 (Version None)
Quarter: 2011Q2

REPORT INFORMATION
  Report Type: 
  Country: None (occurrence: None)
  Receive Date: 20110419
  Receipt Date: 20110419
  Transmission Date: 20111010
  Serious: No
  Sender: FDA-Public Use
  Company Number: None

PATIENT
  Sex: Male

DRUGS (2)
  1. FENTANYL-100 [Suspect]
     Indication: PAIN
     Dosage: 800MCG 3X 1 DAY TRANSMUCOSAL
     Route: 048
     Dates: start: 20110104, end: 20110203
  2. FENTANYL-100 [Suspect]
     Indication: PAIN
     Dosage: 800MCG 3X 1 DAY TRANSMUCOSAL
     Route: 048
     Dates: start: 20101202, end: 20110103

REACTIONS (4)
  - PRODUCT TASTE ABNORMAL [None]
  - PRODUCT ODOUR ABNORMAL [None]
  - PRODUCT SOLUBILITY ABNORMAL [None]
  - PRODUCT PHYSICAL ISSUE [None]
